FAERS Safety Report 6230010-3 (Version None)
Quarter: 2009Q2

REPORT INFORMATION
  Report Type: 
  Country: None (occurrence: None)
  Receive Date: 20090615
  Receipt Date: 20090605
  Transmission Date: 20091009
  Serious: Yes (Hospitalization)
  Sender: FDA-Public Use
  Company Number: US-AVENTIS-200915012US

PATIENT
  Sex: Female

DRUGS (14)
  1. LANTUS [Suspect]
     Dosage: DOSE: 5 UNITS IN AM AND 30 UNITS AT NIGHT
     Route: 058
  2. OPTICLIK (INSULIN INJECTION PEN) [Suspect]
     Dosage: DOSE: UNK
  3. NOVOLOG [Concomitant]
     Dosage: DOSE: 4 UNITS WITH BREAKFAST, 5 UNITS WITH LUNCH AND 6 UNITS WITH DINNER
  4. KEPPRA [Concomitant]
     Dosage: DOSE: 1 TAB
  5. FISH OIL [Concomitant]
     Dosage: DOSE: 2TAB
  6. PLAVIX [Concomitant]
     Dosage: DOSE: 1 TAB
  7. VASOTEC                            /00935901/ [Concomitant]
     Dosage: DOSE: 1 TAB
  8. LEVOTHYROXINE [Concomitant]
     Dosage: DOSE: 1 TAB
  9. ACTONEL [Concomitant]
     Dosage: DOSE: 1 TAB
  10. VALIUM [Concomitant]
     Dosage: DOSE: 1 AS NEEDED
  11. METFORMIN HYDROCHLORIDE [Concomitant]
     Dosage: DOSE: 2 PILLS
  12. MULTI-VITAMINS [Concomitant]
     Dosage: DOSE QUANTITY: 1
  13. MAXALT [Concomitant]
     Dosage: DOSE: 1 TAB AS NEEDED
  14. LYRICA [Concomitant]
     Dosage: DOSE: 2 TABS

REACTIONS (1)
  - ABDOMINAL HERNIA [None]
